FAERS Safety Report 15401279 (Version 1)
Quarter: 2018Q3

REPORT INFORMATION
  Report Type: Spontaneous
  Country: US (occurrence: US)
  Receive Date: 20180919
  Receipt Date: 20180919
  Transmission Date: 20181010
  Serious: No
  Sender: FDA-Public Use
  Company Number: US-SA-2018SA260362

PATIENT
  Age: 41 Year
  Sex: Female

DRUGS (2)
  1. LEMTRADA [Suspect]
     Active Substance: ALEMTUZUMAB
     Route: 041
  2. SOLU?MEDROL [Concomitant]
     Active Substance: METHYLPREDNISOLONE SODIUM SUCCINATE

REACTIONS (3)
  - Oropharyngeal pain [Unknown]
  - Headache [Unknown]
  - Dysphonia [Unknown]
